FAERS Safety Report 9224609 (Version 1)
Quarter: 2013Q2

REPORT INFORMATION
  Report Type: Spontaneous
  Country: US (occurrence: None)
  Receive Date: 20130411
  Receipt Date: 20130411
  Transmission Date: 20140414
  Serious: Yes (Hospitalization)
  Sender: FDA-Public Use
  Company Number: None

PATIENT
  Age: 79 Year
  Sex: Female
  Weight: 39 kg

DRUGS (8)
  1. WARFARIN [Suspect]
     Indication: DEEP VEIN THROMBOSIS
     Dosage: 3.75MG DAILY PO
     Route: 048
  2. WARFARIN [Suspect]
     Indication: PULMONARY EMBOLISM
     Dosage: 3.75MG DAILY PO
     Route: 048
  3. MIRTAZAPINE [Concomitant]
  4. OCULAR LUBRICANT [Concomitant]
  5. SOLIFENACIN [Concomitant]
  6. RISEDRONATE [Concomitant]
  7. UROSDIOL [Concomitant]
  8. LEVOTHYROXINE [Concomitant]

REACTIONS (7)
  - International normalised ratio increased [None]
  - Gastrointestinal haemorrhage [None]
  - Hypophagia [None]
  - Anaemia [None]
  - Haematuria [None]
  - Capillary leak syndrome [None]
  - Gait disturbance [None]
